FAERS Safety Report 4908520-8 (Version None)
Quarter: 2006Q1

REPORT INFORMATION
  Report Type: 
  Country: None (occurrence: None)
  Receive Date: 20060210
  Receipt Date: 20050816
  Transmission Date: 20060701
  Serious: No
  Sender: FDA-Public Use
  Company Number: US-GLAXOSMITHKLINE-A0570428A

PATIENT
  Age: 50 Year
  Sex: Female

DRUGS (4)
  1. PAXIL CR [Suspect]
     Indication: PREMENSTRUAL SYNDROME
     Dosage: 25MG PER DAY
     Route: 048
     Dates: start: 20030101
  2. THYROID TAB [Concomitant]
  3. INDERAL [Concomitant]
  4. UNSPECIFIED MEDICATION [Concomitant]

REACTIONS (1)
  - URTICARIA [None]
